FAERS Safety Report 15951863 (Version 1)
Quarter: 2019Q1

REPORT INFORMATION
  Report Type: Spontaneous
  Country: CA (occurrence: CA)
  Receive Date: 20190212
  Receipt Date: 20190212
  Transmission Date: 20190417
  Serious: Yes (Other)
  Sender: FDA-Public Use
  Company Number: CA-PFIZER INC-2019057387

PATIENT
  Sex: Female

DRUGS (2)
  1. PMS LETROZOLE [Suspect]
     Active Substance: LETROZOLE
     Indication: BREAST CANCER
     Dosage: UNK
     Route: 048
  2. IBRANCE [Suspect]
     Active Substance: PALBOCICLIB
     Indication: BREAST CANCER
     Dosage: UNK
     Route: 048

REACTIONS (4)
  - Drug ineffective [None]
  - Oestradiol increased [Unknown]
  - Neoplasm progression [Unknown]
  - Tumour marker increased [Unknown]
